FAERS Safety Report 4560896-X (Version None)
Quarter: 2005Q1

REPORT INFORMATION
  Report Type: 
  Country: None (occurrence: None)
  Receive Date: 20050126
  Receipt Date: 20050117
  Transmission Date: 20050727
  Serious: Yes (Hospitalization)
  Sender: FDA-Public Use
  Company Number: US-JNJFOC-20050104384

PATIENT
  Sex: Female
  Weight: 97.52 kg

DRUGS (6)
  1. DURAGESIC [Suspect]
     Route: 062
  2. METHADONE HCL [Concomitant]
     Indication: PAIN
     Route: 049
  3. LORTAB [Concomitant]
     Route: 049
  4. LORTAB [Concomitant]
     Indication: PAIN
     Dosage: AS NEEDED
     Route: 049
  5. KLONOPIN [Concomitant]
     Indication: ANXIETY
     Route: 049
  6. KLONOPIN [Concomitant]
     Dosage: AS NEEDED
     Route: 049

REACTIONS (5)
  - GASTRIC DISORDER [None]
  - INSOMNIA [None]
  - PNEUMONIA ASPIRATION [None]
  - SOMNOLENCE [None]
  - VOMITING [None]
